FAERS Safety Report 7932354-3 (Version None)
Quarter: 2011Q4

REPORT INFORMATION
  Report Type: 
  Country: None (occurrence: None)
  Receive Date: 20111121
  Receipt Date: 20111111
  Transmission Date: 20120403
  Serious: Yes (Hospitalization, Other)
  Sender: FDA-Public Use
  Company Number: US-ASTRAZENECA-2011SE58960

PATIENT
  Age: 87 Year
  Sex: Female
  Weight: 59 kg

DRUGS (28)
  1. DONEPEZIL HCL [Concomitant]
  2. ARICEPT [Concomitant]
     Dates: start: 20060101
  3. VALPROIC ACID [Concomitant]
  4. VITAMIN OTC [Concomitant]
  5. DONEPEZIL HCL [Concomitant]
     Dates: start: 20100101
  6. TENATOPRAZOLE [Concomitant]
  7. SEROQUEL [Suspect]
     Route: 048
     Dates: start: 20030101
  8. SEROQUEL [Suspect]
     Route: 048
  9. LORAZEPAM [Concomitant]
  10. AMLODIPINE [Concomitant]
  11. NAMENDA [Concomitant]
     Dates: start: 20060101
  12. NAMENDA [Concomitant]
  13. ROZEREM [Concomitant]
     Dates: start: 20060101
  14. REMERON [Concomitant]
  15. IBUPROFEN [Concomitant]
     Indication: ASTHMA
     Dosage: AS REQUIRED
  16. SEROQUEL [Suspect]
     Dosage: 25 MG IN THE MORNING 200 MG AT NIGHT
     Route: 048
  17. VALPROIC ACID [Concomitant]
  18. ACETAMINOPHEN [Concomitant]
     Dosage: 500 MG
  19. SEROQUEL [Suspect]
     Indication: BIPOLAR DISORDER
     Route: 048
     Dates: start: 20010101
  20. RISPERIDONE [Concomitant]
     Dates: start: 20080101
  21. ASPIRIN [Concomitant]
     Dosage: QAM
  22. REMERON [Concomitant]
     Dates: start: 20060101
  23. FLOVENT [Concomitant]
     Dosage: 110 MCG 2 PUFF BID
  24. STOOL SOFTNER OTC [Concomitant]
  25. LEVOTHYROXINE SODIUM [Concomitant]
     Dates: start: 19910101
  26. RISPERIDONE [Concomitant]
     Dates: start: 20060101
  27. PANTOPRAZOLE [Concomitant]
  28. ASPIRIN [Concomitant]
     Dosage: 0.81 MG

REACTIONS (10)
  - PNEUMONIA [None]
  - ARTHRITIS [None]
  - DEMENTIA ALZHEIMER'S TYPE [None]
  - HIP FRACTURE [None]
  - CONSTIPATION [None]
  - FALL [None]
  - BEDRIDDEN [None]
  - DECUBITUS ULCER [None]
  - DYSGRAPHIA [None]
  - URINARY TRACT INFECTION [None]
